FAERS Safety Report 10333228 (Version 2)
Quarter: 2014Q3

REPORT INFORMATION
  Report Type: Spontaneous
  Country: CA (occurrence: CA)
  Receive Date: 20140722
  Receipt Date: 20140722
  Transmission Date: 20150326
  Serious: No
  Sender: FDA-Public Use
  Company Number: CA-MERCK-1309CAN006899

PATIENT
  Age: 46 Year
  Sex: Male
  Weight: 86 kg

DRUGS (4)
  1. AERIUS [Suspect]
     Active Substance: DESLORATADINE
     Indication: NASAL CONGESTION
  2. AERIUS [Suspect]
     Active Substance: DESLORATADINE
     Indication: LACRIMATION INCREASED
  3. AERIUS [Suspect]
     Active Substance: DESLORATADINE
     Indication: HYPERSENSITIVITY
     Dosage: 5 MG, QD
     Route: 048
     Dates: start: 20120518, end: 20120519
  4. AERIUS [Suspect]
     Active Substance: DESLORATADINE
     Indication: COUGH

REACTIONS (3)
  - Irritability [Recovered/Resolved]
  - Fatigue [Recovered/Resolved]
  - Depression [Recovered/Resolved]

NARRATIVE: CASE EVENT DATE: 20120519
